FAERS Safety Report 8298134-7 (Version None)
Quarter: 2012Q2

REPORT INFORMATION
  Report Type: 
  Country: None (occurrence: None)
  Receive Date: 20120419
  Receipt Date: 20120411
  Transmission Date: 20120825
  Serious: Yes (Hospitalization)
  Sender: FDA-Public Use
  Company Number: US-AMGEN-QUU430266

PATIENT
  Age: 77 Year
  Sex: Female

DRUGS (35)
  1. TYLENOL (CAPLET) [Concomitant]
     Dosage: 325 UNK, UNK
  2. HYDROXYUREA [Concomitant]
     Dosage: 500 MG, QD
  3. PROPYLENE GLYCOL [Concomitant]
  4. VITAMIN C                          /00008001/ [Concomitant]
     Dosage: 500 UNK, UNK
  5. HYDROCODONE BITARTRATE AND ACETAMINOPHEN [Concomitant]
     Dosage: UNK UNK, PRN
  6. SODIUM CHLORIDE [Concomitant]
  7. COENZYME [Concomitant]
  8. MULTIVITAMIN                       /00097801/ [Concomitant]
  9. METHOTREXATE [Concomitant]
     Dosage: 2.5 MG, QWK
  10. FOLIC ACID [Concomitant]
     Dosage: 1 MG, TID
  11. CALCIUM CITRATE WITH VITAMIN D [Concomitant]
     Dosage: 4 UNK, QD
  12. LUTEIN                             /01638501/ [Concomitant]
     Dosage: 20 UNK, UNK
  13. MUCINEX [Concomitant]
  14. ENBREL [Suspect]
  15. ENBREL [Suspect]
  16. ENBREL [Suspect]
     Dosage: UNK
  17. CYMBALTA [Concomitant]
     Dosage: 30 MG, UNK
  18. CYCLOBENZAPRINE HYDROCHLORIDE [Concomitant]
     Dosage: 10 MG, UNK
  19. PRAMIPEXOLE DIHYDROCHLORIDE [Concomitant]
     Dosage: UNK UNK, QD
  20. BUMETANIDE [Concomitant]
     Dosage: 2 MG, UNK
  21. PANTOPRAZOLE [Concomitant]
     Dosage: 30 MG, BID
  22. ASPIRIN [Concomitant]
     Dosage: 81 MG, UNK
  23. FEOSOL [Concomitant]
     Dosage: 45 UNK, UNK
  24. ALPRAZOLAM [Concomitant]
     Dosage: 0.25 MG, PRN
  25. MAGNESIUM [Concomitant]
  26. ALENDRONATE SODIUM [Concomitant]
     Dosage: 70 MG, QWK
     Dates: start: 20080301
  27. FLORASTOR [Concomitant]
  28. VITAMIN B12                        /00056201/ [Concomitant]
     Dosage: 1000 UNK, UNK
  29. DIOVAN [Concomitant]
     Dosage: 160 UNK, UNK
  30. VITAMIN D [Concomitant]
     Dosage: 2000 UNIT, QD
  31. BENEFIBER                          /00677201/ [Concomitant]
  32. ENBREL [Suspect]
     Indication: RHEUMATOID ARTHRITIS
     Dosage: 50 MG, QWK
     Route: 058
     Dates: start: 20090814
  33. SYNTHROID [Concomitant]
     Dosage: 135 MG, UNK
  34. STOOL SOFTENER [Concomitant]
  35. GAS-X                              /01765401/ [Concomitant]

REACTIONS (26)
  - COMPRESSION FRACTURE [None]
  - JOINT SWELLING [None]
  - OEDEMA PERIPHERAL [None]
  - DECREASED APPETITE [None]
  - PALPITATIONS [None]
  - OSTEOARTHRITIS [None]
  - DRY MOUTH [None]
  - NASAL CONGESTION [None]
  - PARAESTHESIA [None]
  - INSOMNIA [None]
  - ARTHRALGIA [None]
  - HYPOAESTHESIA [None]
  - MEMORY IMPAIRMENT [None]
  - DYSPEPSIA [None]
  - BALANCE DISORDER [None]
  - BODY HEIGHT DECREASED [None]
  - BACK PAIN [None]
  - THINKING ABNORMAL [None]
  - TREATMENT NONCOMPLIANCE [None]
  - MUSCULOSKELETAL STIFFNESS [None]
  - EXCORIATION [None]
  - ESSENTIAL THROMBOCYTHAEMIA [None]
  - DRY EYE [None]
  - NECK PAIN [None]
  - FATIGUE [None]
  - STOMATITIS [None]
